FAERS Safety Report 9783648 (Version 1)
Quarter: 2013Q4

REPORT INFORMATION
  Report Type: Spontaneous
  Country: US (occurrence: US)
  Receive Date: 20131226
  Receipt Date: 20131226
  Transmission Date: 20140711
  Serious: Yes (Hospitalization, Other)
  Sender: FDA-Public Use
  Company Number: US-BAYER-2013-155902

PATIENT
  Age: 68 Year
  Sex: Male

DRUGS (1)
  1. XOFIGO [Suspect]
     Indication: PROSTATE CANCER
     Dosage: UNK
     Route: 042
     Dates: start: 2013, end: 2013

REACTIONS (9)
  - Red blood cell count decreased [Recovering/Resolving]
  - White blood cell count decreased [Recovering/Resolving]
  - Oesophageal ulcer [Recovering/Resolving]
  - Asthenia [Recovering/Resolving]
  - Aphagia [Recovering/Resolving]
  - Cytomegalovirus infection [Recovering/Resolving]
  - Pneumonia [Recovering/Resolving]
  - Spinal cord compression [Recovering/Resolving]
  - Decubitus ulcer [Recovering/Resolving]
